FAERS Safety Report 5745612-8 (Version None)
Quarter: 2008Q2

REPORT INFORMATION
  Report Type: 
  Country: None (occurrence: None)
  Receive Date: 20080519
  Receipt Date: 20080207
  Transmission Date: 20081010
  Serious: No
  Sender: FDA-Public Use
  Company Number: TPA2008A00194

PATIENT
  Sex: Female

DRUGS (2)
  1. ROZEREM [Suspect]
     Indication: INITIAL INSOMNIA
     Dosage: 8 MG, 1 IN 1 D 30 MIN BEFORE BED, PER ORAL; PER ORAL
     Route: 048
  2. VOLTAREN [Concomitant]

REACTIONS (1)
  - BONE PAIN [None]
